FAERS Safety Report 4888450-0 (Version None)
Quarter: 2006Q1

REPORT INFORMATION
  Report Type: 
  Country: None (occurrence: None)
  Receive Date: 20060119
  Receipt Date: 20060110
  Transmission Date: 20060701
  Serious: Yes (Other)
  Sender: FDA-Public Use
  Company Number: 2006005479

PATIENT
  Age: 44 Year
  Sex: Male
  Weight: 102.0593 kg

DRUGS (5)
  1. BENADRYL [Suspect]
     Indication: INSOMNIA
     Dosage: ONE ULTRATAB NIGHTLY, ORAL
     Route: 048
     Dates: start: 20050101, end: 20051231
  2. FUROSEMIDE [Concomitant]
  3. ENALAPRIL MALEATE [Concomitant]
  4. GLIPIZIDE [Concomitant]
  5. ATORVASTATIN CALCIUM [Concomitant]

REACTIONS (3)
  - DRUG DEPENDENCE [None]
  - INSOMNIA [None]
  - IRRITABILITY [None]
